FAERS Safety Report 4501983-1 (Version None)
Quarter: 2004Q4

REPORT INFORMATION
  Report Type: 
  Country: None (occurrence: None)
  Receive Date: 20041115
  Receipt Date: 20041115
  Transmission Date: 20050328
  Serious: Yes (Death)
  Sender: FDA-Public Use
  Company Number: None

PATIENT
  Sex: Female
  Weight: 95 kg

DRUGS (20)
  1. LOVENOX [Suspect]
     Indication: ANTICOAGULANT THERAPY
     Dosage: 100MG  EVERY 12 HOURS  SUBCUTANEOUS
     Route: 058
     Dates: start: 20040831, end: 20040901
  2. LOVENOX [Suspect]
     Indication: ATRIAL FIBRILLATION
     Dosage: 100MG  EVERY 12 HOURS  SUBCUTANEOUS
     Route: 058
     Dates: start: 20040831, end: 20040901
  3. HEPARIN [Suspect]
     Indication: ANTICOAGULANT THERAPY
     Dosage: TITRATE  PER PROTOCOL  INTRAVENOUS
     Route: 042
  4. HEPARIN [Suspect]
     Indication: ATRIAL FIBRILLATION
     Dosage: TITRATE  PER PROTOCOL  INTRAVENOUS
     Route: 042
  5. ASCORBIC ACID [Concomitant]
  6. CARVEDILOL [Concomitant]
  7. DOCUSATE [Concomitant]
  8. FUROSEMIDE [Concomitant]
  9. MOM [Concomitant]
  10. SENNA LIQUID [Concomitant]
  11. DILTIAZEM [Concomitant]
  12. HEPARIN [Concomitant]
  13. INSULIN [Concomitant]
  14. HESPAN [Concomitant]
  15. PROTONIX [Concomitant]
  16. CLINDAMYCIN HCL [Concomitant]
  17. FENTANYL [Concomitant]
  18. PERCOCET [Concomitant]
  19. WARFARIN SODIUM [Concomitant]
  20. BUMEX [Concomitant]

REACTIONS (6)
  - ARTERIAL INJURY [None]
  - CARDIO-RESPIRATORY ARREST [None]
  - HAEMOGLOBIN DECREASED [None]
  - MENTAL STATUS CHANGES POSTOPERATIVE [None]
  - PERITONEAL HAEMORRHAGE [None]
  - RENAL IMPAIRMENT [None]
